FAERS Safety Report 8304698-7 (Version None)
Quarter: 2012Q2

REPORT INFORMATION
  Report Type: 
  Country: None (occurrence: None)
  Receive Date: 20120423
  Receipt Date: 20120411
  Transmission Date: 20120825
  Serious: Yes (Other)
  Sender: FDA-Public Use
  Company Number: US-SANOFI-AVENTIS-2012SA025469

PATIENT
  Age: 59 Year
  Sex: Female
  Weight: 159 kg

DRUGS (5)
  1. SPIRONOLACTONE [Suspect]
     Route: 065
  2. LEVOTHYROXINE SODIUM [Concomitant]
     Indication: HYPERTHYROIDISM
  3. TADALAFIL [Suspect]
     Indication: PULMONARY HYPERTENSION
     Route: 065
  4. LASIX [Suspect]
     Route: 065
  5. CELEBREX [Suspect]
     Route: 065

REACTIONS (5)
  - CARDIAC FAILURE CONGESTIVE [None]
  - RENAL FAILURE [None]
  - PULMONARY ARTERIAL HYPERTENSION [None]
  - DIABETES MELLITUS [None]
  - ABASIA [None]
